FAERS Safety Report 13833753 (Version 1)
Quarter: 2017Q3

REPORT INFORMATION
  Report Type: Report from Study
  Country: IN (occurrence: IN)
  Receive Date: 20170804
  Receipt Date: 20170804
  Transmission Date: 20171127
  Serious: Yes (Death, Life-Threatening)
  Sender: FDA-Public Use
  Company Number: IN-ROCHE-1954680

PATIENT

DRUGS (3)
  1. CYCLOSPORINE. [Suspect]
     Active Substance: CYCLOSPORINE
     Indication: PROPHYLAXIS AGAINST TRANSPLANT REJECTION
     Route: 065
  2. PREDNISOLONE. [Suspect]
     Active Substance: PREDNISOLONE
     Indication: PROPHYLAXIS AGAINST TRANSPLANT REJECTION
     Route: 065
  3. MYCOPHENOLATE MOFETIL. [Suspect]
     Active Substance: MYCOPHENOLATE MOFETIL
     Indication: PROPHYLAXIS AGAINST TRANSPLANT REJECTION
     Dosage: 1.5-2 G/DAY
     Route: 065

REACTIONS (15)
  - Gastrointestinal disorder [Unknown]
  - Oral candidiasis [Unknown]
  - Wound infection [Unknown]
  - Urinary tract infection [Unknown]
  - Herpes simplex [Unknown]
  - Systemic infection [Fatal]
  - Infection [Unknown]
  - Diarrhoea [Unknown]
  - Fungal infection [Unknown]
  - Abdominal pain [Unknown]
  - Haematotoxicity [Unknown]
  - Viral infection [Unknown]
  - Cytomegalovirus infection [Unknown]
  - Leukopenia [Unknown]
  - Gastrooesophageal reflux disease [Unknown]
